FAERS Safety Report 24980009 (Version 1)
Quarter: 2025Q1

REPORT INFORMATION
  Report Type: Spontaneous
  Country: BR (occurrence: BR)
  Receive Date: 20250218
  Receipt Date: 20250218
  Transmission Date: 20250408
  Serious: Yes (Hospitalization, Other)
  Sender: AMGEN
  Company Number: BR-AMGEN-BRASP2025028974

PATIENT

DRUGS (2)
  1. ADALIMUMAB [Suspect]
     Active Substance: ADALIMUMAB
     Indication: Crohn^s disease
     Route: 065
  2. INFLIXIMAB [Suspect]
     Active Substance: INFLIXIMAB
     Indication: Crohn^s disease
     Route: 065

REACTIONS (17)
  - Post procedural complication [Unknown]
  - Sepsis [Unknown]
  - Intestinal stenosis [Unknown]
  - Enterocolonic fistula [Unknown]
  - Ileus paralytic [Unknown]
  - Large intestine perforation [Unknown]
  - Intestinal haemorrhage [Unknown]
  - Pulmonary embolism [Unknown]
  - Enterocutaneous fistula [Unknown]
  - Bone marrow failure [Unknown]
  - Anastomotic leak [Unknown]
  - Intra-abdominal fluid collection [Unknown]
  - Abdominal adhesions [Unknown]
  - Vascular access site infection [Unknown]
  - Abdominal wall infection [Unknown]
  - Abdominal wall oedema [Unknown]
  - Localised infection [Unknown]
